FAERS Safety Report 6485191-3 (Version None)
Quarter: 2009Q4

REPORT INFORMATION
  Report Type: 
  Country: None (occurrence: None)
  Receive Date: 20091203
  Receipt Date: 20091123
  Transmission Date: 20100525
  Serious: Yes (Death, Other)
  Sender: FDA-Public Use
  Company Number: JHP200900355

PATIENT
  Age: 57 Year
  Sex: Male

DRUGS (2)
  1. COLY-MYCIN M [Suspect]
     Indication: BACTERIAL INFECTION
     Dosage: 150 MG, BID, INTRAVENOUS; 100 MG, INTRAVENOUS
     Route: 042
  2. ANTIBIOTICS [Concomitant]

REACTIONS (3)
  - HYPOALBUMINAEMIA [None]
  - NEPHROPATHY TOXIC [None]
  - TREATMENT FAILURE [None]
